FAERS Safety Report 10791941 (Version 2)
Quarter: 2015Q2

REPORT INFORMATION
  Report Type: Spontaneous
  Country: CH (occurrence: None)
  Receive Date: 20150211
  Receipt Date: 20150416
  Transmission Date: 20150821
  Serious: Yes (Disabling)
  Sender: FDA-Public Use
  Company Number: 20150066

PATIENT
  Age: 51 Year

DRUGS (2)
  1. VENOFER [Suspect]
     Active Substance: IRON SUCROSE
     Indication: SERUM FERRITIN DECREASED
     Dosage: 4  TOTAL
     Route: 040
     Dates: start: 20100430, end: 20100512
  2. SODIUM CHLORIDE. [Concomitant]
     Active Substance: SODIUM CHLORIDE

REACTIONS (3)
  - Injection site pain [None]
  - Nerve injury [None]
  - Toxicity to various agents [None]

NARRATIVE: CASE EVENT DATE: 201005
